FAERS Safety Report 8971629 (Version 1)
Quarter: 2012Q4

REPORT INFORMATION
  Report Type: Report from Study
  Country: FR (occurrence: FR)
  Receive Date: 20121217
  Receipt Date: 20121217
  Transmission Date: 20130627
  Serious: Yes (Hospitalization)
  Sender: FDA-Public Use
  Company Number: FR-ROCHE-1169460

PATIENT
  Age: 76 Year
  Sex: Male

DRUGS (1)
  1. RITUXIMAB [Suspect]
     Indication: CHRONIC LYMPHOCYTIC LEUKAEMIA
     Route: 041
     Dates: start: 20120213, end: 20120213

REACTIONS (2)
  - Abnormal behaviour [Recovered/Resolved]
  - Pancytopenia [Unknown]
